FAERS Safety Report 7609217-6 (Version None)
Quarter: 2011Q3

REPORT INFORMATION
  Report Type: 
  Country: None (occurrence: None)
  Receive Date: 20110706
  Receipt Date: 20110620
  Transmission Date: 20111222
  Serious: Yes (Other)
  Sender: FDA-Public Use
  Company Number: TRP_07809_2011

PATIENT
  Age: 60 Year
  Sex: Female
  Weight: 105 kg

DRUGS (2)
  1. INFERGEN [Suspect]
     Indication: HEPATITIS C
     Dosage: 15 ?G QD SUBCUTANEOUS; 10 ?G QD SUBCUTANEOUS
     Route: 058
     Dates: start: 20110108, end: 20110101
  2. INFERGEN [Suspect]
     Indication: HEPATITIS C
     Dosage: 15 ?G QD SUBCUTANEOUS; 10 ?G QD SUBCUTANEOUS
     Route: 058
     Dates: start: 20110101

REACTIONS (2)
  - PLATELET COUNT DECREASED [None]
  - HAEMATURIA [None]
